FAERS Safety Report 9956399 (Version 2)
Quarter: 2014Q1

REPORT INFORMATION
  Report Type: Report from Study
  Country: US (occurrence: US)
  Receive Date: 20140304
  Receipt Date: 20140304
  Transmission Date: 20141002
  Serious: Yes (Other)
  Sender: FDA-Public Use
  Company Number: US-ABBVIE-07P-163-0378873-00

PATIENT
  Age: 48 Year
  Sex: Female
  Weight: 68.1 kg

DRUGS (7)
  1. HUMIRA [Suspect]
     Indication: PSORIATIC ARTHROPATHY
     Route: 058
     Dates: start: 2006
  2. CELEBREX [Concomitant]
     Indication: PRODUCT USED FOR UNKNOWN INDICATION
  3. METHOTREXATE [Concomitant]
     Indication: PSORIATIC ARTHROPATHY
     Route: 048
  4. NEXIUM [Concomitant]
     Indication: PRODUCT USED FOR UNKNOWN INDICATION
  5. FOLIC ACID [Concomitant]
     Indication: PRODUCT USED FOR UNKNOWN INDICATION
  6. VITAMIN D [Concomitant]
     Indication: PRODUCT USED FOR UNKNOWN INDICATION
  7. ZOLPIDEM [Concomitant]
     Indication: PRODUCT USED FOR UNKNOWN INDICATION
     Dosage: AT BEDTIME

REACTIONS (10)
  - Localised infection [Recovering/Resolving]
  - Localised infection [Recovered/Resolved]
  - Furuncle [Recovered/Resolved]
  - Infection [Recovering/Resolving]
  - Injection site pain [Not Recovered/Not Resolved]
  - Finger deformity [Unknown]
  - Back pain [Unknown]
  - Musculoskeletal stiffness [Unknown]
  - Injection site pain [Unknown]
  - Injection site pain [Unknown]
